FAERS Safety Report 6842129-4 (Version None)
Quarter: 2010Q3

REPORT INFORMATION
  Report Type: 
  Country: None (occurrence: None)
  Receive Date: 20100714
  Receipt Date: 20070723
  Transmission Date: 20110219
  Serious: No
  Sender: FDA-Public Use
  Company Number: US-PFIZER INC-2007061821

PATIENT
  Sex: Male
  Weight: 77.1 kg

DRUGS (10)
  1. CHANTIX [Suspect]
     Indication: SMOKING CESSATION THERAPY
     Dates: start: 20070716
  2. ZYPREXA [Concomitant]
  3. ZOLOFT [Concomitant]
  4. TRICOR [Concomitant]
  5. KLONOPIN [Concomitant]
  6. GEODON [Concomitant]
  7. TRILEPTAL [Concomitant]
  8. ZETIA [Concomitant]
  9. FOLIC ACID [Concomitant]
  10. SPIRIVA [Concomitant]

REACTIONS (5)
  - DIARRHOEA [None]
  - DIZZINESS [None]
  - FATIGUE [None]
  - NASOPHARYNGITIS [None]
  - SOMNOLENCE [None]
